FAERS Safety Report 5883480-4 (Version None)
Quarter: 2008Q3

REPORT INFORMATION
  Report Type: 
  Country: None (occurrence: None)
  Receive Date: 20080915
  Receipt Date: 20080903
  Transmission Date: 20090109
  Serious: Yes (Hospitalization)
  Sender: FDA-Public Use
  Company Number: DE-WYE-H05875508

PATIENT
  Age: 70 Year
  Sex: Male

DRUGS (2)
  1. PANTOZOL [Suspect]
     Indication: DYSPEPSIA
     Route: 048
     Dates: start: 20080711, end: 20080813
  2. FAVISTAN [Concomitant]
     Indication: HYPERTHYROIDISM
     Dosage: UNSPECIFIED
     Route: 065

REACTIONS (1)
  - RENAL FAILURE ACUTE [None]
